FAERS Safety Report 9719432 (Version 3)
Quarter: 2013Q4

REPORT INFORMATION
  Report Type: Report from Study
  Country: BR (occurrence: BR)
  Receive Date: 20131128
  Receipt Date: 20131210
  Transmission Date: 20140711
  Serious: Yes (Hospitalization, Other)
  Sender: FDA-Public Use
  Company Number: BR-ROCHE-1093691

PATIENT
  Sex: Female
  Weight: 92 kg

DRUGS (11)
  1. MABTHERA [Suspect]
     Indication: RHEUMATOID ARTHRITIS
     Dosage: LAST DOSE RECEIVED: JAN/2012.
     Route: 042
     Dates: start: 200906, end: 201201
  2. CAPTOPRIL [Concomitant]
     Route: 065
  3. PROPRANOLOL [Concomitant]
     Route: 065
  4. FLUOXETINE [Concomitant]
     Route: 065
  5. RIVOTRIL [Concomitant]
     Route: 065
  6. PREDNISONE [Concomitant]
  7. MELOXICAM [Concomitant]
  8. OMEPRAZOLE [Concomitant]
  9. NIMESULIDE [Concomitant]
  10. KETOPROFEN [Concomitant]
  11. ATENOLOL [Concomitant]

REACTIONS (4)
  - Pyelonephritis [Unknown]
  - Uterine disorder [Unknown]
  - Cystocele [Recovered/Resolved]
  - Urinary tract infection [Recovered/Resolved]
